FAERS Safety Report 6997473-7 (Version None)
Quarter: 2010Q3

REPORT INFORMATION
  Report Type: 
  Country: None (occurrence: None)
  Receive Date: 20100918
  Receipt Date: 20091019
  Transmission Date: 20110219
  Serious: No
  Sender: FDA-Public Use
  Company Number: US-WYE-H11732709

PATIENT
  Sex: Female
  Weight: 47.22 kg

DRUGS (2)
  1. PRISTIQ [Suspect]
     Indication: DEPRESSION
     Route: 048
     Dates: start: 20090101, end: 20091011
  2. PRISTIQ [Suspect]
     Indication: MOOD SWINGS

REACTIONS (4)
  - ANGER [None]
  - CRYING [None]
  - HEADACHE [None]
  - PARAESTHESIA [None]
